FAERS Safety Report 23257169 (Version 1)
Quarter: 2023Q4

REPORT INFORMATION
  Report Type: Spontaneous
  Country: FR (occurrence: FR)
  Receive Date: 20231204
  Receipt Date: 20231204
  Transmission Date: 20240110
  Serious: Yes (Hospitalization, Other)
  Sender: FDA-Public Use
  Company Number: FR-JNJFOC-20230863195

PATIENT
  Age: 54 Year
  Sex: Male
  Weight: 68 kg

DRUGS (11)
  1. DEXAMETHASONE [Suspect]
     Active Substance: DEXAMETHASONE
     Indication: Plasma cell myeloma
     Route: 065
     Dates: start: 20230405
  2. DEXAMETHASONE [Suspect]
     Active Substance: DEXAMETHASONE
     Route: 065
     Dates: start: 20221212
  3. DEXAMETHASONE [Suspect]
     Active Substance: DEXAMETHASONE
     Route: 065
     Dates: start: 20221121
  4. VELCADE [Suspect]
     Active Substance: BORTEZOMIB
     Indication: Plasma cell myeloma
     Route: 065
     Dates: start: 20230405
  5. DOXORUBICIN [Suspect]
     Active Substance: DOXORUBICIN
     Indication: Plasma cell myeloma
     Route: 065
     Dates: start: 20230405
  6. PREDNISONE [Concomitant]
     Active Substance: PREDNISONE
     Indication: Plasma cell myeloma
     Route: 065
     Dates: start: 20230110
  7. ISATUXIMAB [Concomitant]
     Active Substance: ISATUXIMAB
     Indication: Plasma cell myeloma
     Route: 065
     Dates: start: 20230110
  8. ISATUXIMAB [Concomitant]
     Active Substance: ISATUXIMAB
     Dates: start: 20221212
  9. POMALIDOMIDE [Concomitant]
     Active Substance: POMALIDOMIDE
     Indication: Plasma cell myeloma
     Route: 065
     Dates: start: 20230110
  10. POMALIDOMIDE [Concomitant]
     Active Substance: POMALIDOMIDE
     Route: 065
     Dates: start: 20221212
  11. POMALIDOMIDE [Concomitant]
     Active Substance: POMALIDOMIDE
     Route: 065
     Dates: start: 20221121

REACTIONS (5)
  - Bone pain [Unknown]
  - Vascular device infection [Recovered/Resolved]
  - Hypokalaemia [Recovered/Resolved]
  - Rhinorrhoea [Recovered/Resolved]
  - Anxiety [Unknown]

NARRATIVE: CASE EVENT DATE: 20230512
